FAERS Safety Report 21792183 (Version 1)
Quarter: 2022Q4

REPORT INFORMATION
  Report Type: Spontaneous
  Country: DE (occurrence: DE)
  Receive Date: 20221229
  Receipt Date: 20221229
  Transmission Date: 20230112
  Serious: Yes (Other)
  Sender: FDA-Public Use
  Company Number: DE-JNJFOC-20221246484

PATIENT
  Sex: Male

DRUGS (1)
  1. TREMFYA [Suspect]
     Active Substance: GUSELKUMAB
     Indication: Product used for unknown indication
     Route: 065
     Dates: start: 20221125

REACTIONS (7)
  - Jaundice cholestatic [Unknown]
  - Cough [Unknown]
  - Weight decreased [Unknown]
  - Increased bronchial secretion [Unknown]
  - Respiratory disorder [Unknown]
  - Headache [Unknown]
  - Mycobacterium tuberculosis complex test positive [Unknown]
